FAERS Safety Report 24295497 (Version 3)
Quarter: 2024Q4

REPORT INFORMATION
  Report Type: Spontaneous
  Country: GB (occurrence: GB)
  Receive Date: 20240908
  Receipt Date: 20241111
  Transmission Date: 20250115
  Serious: Yes (Hospitalization)
  Sender: RECORDATI
  Company Number: GB-ORPHANEU-2024006771

PATIENT

DRUGS (2)
  1. SILTUXIMAB [Suspect]
     Active Substance: SILTUXIMAB
     Indication: Product used for unknown indication
     Dosage: FIRST DOSE
  2. LENALIDOMIDE [Suspect]
     Active Substance: LENALIDOMIDE
     Indication: Product used for unknown indication

REACTIONS (3)
  - Nephrolithiasis [Recovering/Resolving]
  - Lung disorder [Recovering/Resolving]
  - Cardiac disorder [Recovering/Resolving]

NARRATIVE: CASE EVENT DATE: 20240101
